FAERS Safety Report 14737172 (Version 1)
Quarter: 2018Q2

REPORT INFORMATION
  Report Type: Report from Study
  Country: US (occurrence: US)
  Receive Date: 20180409
  Receipt Date: 20180409
  Transmission Date: 20180711
  Serious: No
  Sender: FDA-Public Use
  Company Number: US-AMGEN-USASL2018015792

PATIENT
  Age: 72 Year
  Sex: Female

DRUGS (1)
  1. PROLIA [Suspect]
     Active Substance: DENOSUMAB
     Indication: OSTEOPOROSIS POSTMENOPAUSAL
     Dosage: UNK
     Route: 065
     Dates: start: 20171218

REACTIONS (9)
  - Upper respiratory tract congestion [Not Recovered/Not Resolved]
  - Wheezing [Recovering/Resolving]
  - Fatigue [Not Recovered/Not Resolved]
  - Sneezing [Recovering/Resolving]
  - Pain [Recovering/Resolving]
  - Body temperature decreased [Recovering/Resolving]
  - Productive cough [Recovering/Resolving]
  - Gait disturbance [Recovering/Resolving]
  - Dyspnoea [Recovering/Resolving]

NARRATIVE: CASE EVENT DATE: 20171218
